FAERS Safety Report 9374649 (Version 2)
Quarter: 2013Q3

REPORT INFORMATION
  Report Type: Spontaneous
  Country: MY (occurrence: MY)
  Receive Date: 20130628
  Receipt Date: 20130710
  Transmission Date: 20140515
  Serious: Yes (Other)
  Sender: FDA-Public Use
  Company Number: MY-PFIZER INC-2013189089

PATIENT
  Sex: Female

DRUGS (6)
  1. LOETTE 21 [Suspect]
     Indication: CONTRACEPTION
     Dosage: UNK, 1X/DAY
     Dates: start: 20130429, end: 20130602
  2. VITAMIN C [Concomitant]
  3. CALCIUM [Concomitant]
     Dosage: AT NIGHT
  4. MULTIVIT [Concomitant]
  5. FISH OIL [Concomitant]
  6. QUINTON [Concomitant]

REACTIONS (2)
  - Suicidal ideation [Recovered/Resolved]
  - Depression [Recovered/Resolved]
